FAERS Safety Report 5306843-4 (Version None)
Quarter: 2007Q2

REPORT INFORMATION
  Report Type: 
  Country: None (occurrence: None)
  Receive Date: 20070420
  Receipt Date: 20070420
  Transmission Date: 20071010
  Serious: Yes (Other)
  Sender: FDA-Public Use
  Company Number: None

PATIENT
  Sex: Female
  Weight: 97.5234 kg

DRUGS (2)
  1. PROPOXYPHENE HCL AND ACETAMINOPHEN [Suspect]
     Indication: PAIN
     Dosage: 1 PO TID
     Route: 048
     Dates: start: 20051201
  2. CARBIDOPA AND LEVODOPA [Suspect]
     Indication: TREMOR
     Dosage: 1 PO BID
     Route: 048
     Dates: start: 20050801

REACTIONS (4)
  - DIZZINESS [None]
  - DRUG EFFECT DECREASED [None]
  - THERAPEUTIC RESPONSE UNEXPECTED WITH DRUG SUBSTITUTION [None]
  - TREMOR [None]
